FAERS Safety Report 5107633-8 (Version None)
Quarter: 2006Q3

REPORT INFORMATION
  Report Type: 
  Country: None (occurrence: None)
  Receive Date: 20060919
  Receipt Date: 20051130
  Transmission Date: 20061208
  Serious: Yes (Other)
  Sender: FDA-Public Use
  Company Number: PHRM2005FR03218

PATIENT
  Age: 40 Year
  Sex: Female

DRUGS (2)
  1. ESCITALOPRAM [Concomitant]
     Indication: DEPRESSION
     Dosage: 10 MG/DAY
     Route: 048
  2. TEGRETOL [Suspect]
     Indication: BIPOLAR DISORDER
     Dosage: 400 MG/DAY
     Route: 048
     Dates: start: 20050601

REACTIONS (2)
  - ABORTION INDUCED [None]
  - DRUG EXPOSURE DURING PREGNANCY [None]
